FAERS Safety Report 6510547-X (Version None)
Quarter: 2009Q4

REPORT INFORMATION
  Report Type: 
  Country: None (occurrence: None)
  Receive Date: 20091222
  Receipt Date: 20091026
  Transmission Date: 20100525
  Serious: No
  Sender: FDA-Public Use
  Company Number: US-ASTRAZENECA-2009SE22613

PATIENT
  Age: 79 Year
  Sex: Male
  Weight: 81.6 kg

DRUGS (6)
  1. CRESTOR [Suspect]
     Route: 048
     Dates: start: 20090101
  2. METOPROLOL TARTRATE [Concomitant]
  3. FINASTERIDE [Concomitant]
  4. BABY ASPIRIN [Concomitant]
  5. NIACIN [Concomitant]
  6. VITAMINS [Concomitant]

REACTIONS (1)
  - MUSCULOSKELETAL STIFFNESS [None]
